FAERS Safety Report 6414277-4 (Version None)
Quarter: 2009Q4

REPORT INFORMATION
  Report Type: 
  Country: None (occurrence: None)
  Receive Date: 20091026
  Receipt Date: 20091014
  Transmission Date: 20100525
  Serious: Yes (Other)
  Sender: FDA-Public Use
  Company Number: US-PFIZER INC-2009284044

PATIENT
  Sex: Female
  Weight: 111 kg

DRUGS (8)
  1. CHANTIX [Suspect]
     Indication: SMOKING CESSATION THERAPY
     Dosage: 0.5 MG, 1X/DAY
     Route: 048
     Dates: start: 20091009, end: 20091011
  2. CHANTIX [Suspect]
     Dosage: 0.5 MG, 2X/DAY
     Route: 048
     Dates: start: 20091012
  3. INSULIN [Concomitant]
     Indication: DIABETES MELLITUS
     Dosage: UNK
  4. AMARYL [Concomitant]
     Indication: DIABETES MELLITUS
     Dosage: UNK
  5. GLUCOPHAGE [Concomitant]
     Indication: DIABETES MELLITUS
     Dosage: UNK
  6. DEPAKOTE [Concomitant]
     Dosage: UNK
  7. RISPERDAL [Concomitant]
     Dosage: UNK
  8. ZOLOFT [Concomitant]
     Dosage: UNK

REACTIONS (1)
  - BLOOD GLUCOSE INCREASED [None]
